FAERS Safety Report 8339761-8 (Version None)
Quarter: 2012Q2

REPORT INFORMATION
  Report Type: 
  Country: None (occurrence: None)
  Receive Date: 20120507
  Receipt Date: 20120430
  Transmission Date: 20120825
  Serious: Yes (Hospitalization)
  Sender: FDA-Public Use
  Company Number: US-BAYER-2012-029689

PATIENT
  Age: 33 Year
  Sex: Female

DRUGS (13)
  1. BIAXIN [Concomitant]
     Indication: SINUSITIS
     Dosage: UNK
     Dates: start: 20100301
  2. YASMIN [Suspect]
     Route: 048
  3. NITROFURANTOIN [Concomitant]
     Dosage: UNK
     Dates: start: 20100210
  4. FEXOFENADINE HCL AND PSEUDOEPHEDRINE HCL [Concomitant]
     Dosage: UNK
     Dates: start: 20100308
  5. DROSPIRENONE AND ETHINYL ESTRADIOL [Suspect]
     Dosage: UNK
     Dates: start: 20100101
  6. LEVAQUIN [Concomitant]
     Dosage: UNK
     Dates: start: 20091213
  7. IBUPROFEN [Concomitant]
     Dosage: UNK
     Dates: start: 20100210
  8. YAZ [Suspect]
  9. CEPHALEXIN [Concomitant]
     Dosage: UNK
     Dates: start: 20100216
  10. NOTUSS [CHLORPHENAMINE,HYDROCODONE,PSEUDOEPHEDRINE] [Concomitant]
     Dosage: UNK
     Dates: start: 20100301
  11. MORPHINE [Concomitant]
  12. CLARITHROMYCIN [Concomitant]
     Dosage: UNK
     Dates: start: 20100301
  13. PHENERGAN [Concomitant]

REACTIONS (4)
  - PAIN [None]
  - DEEP VEIN THROMBOSIS [None]
  - INJURY [None]
  - PULMONARY EMBOLISM [None]
